FAERS Safety Report 21701531 (Version 1)
Quarter: 2022Q4

REPORT INFORMATION
  Report Type: Spontaneous
  Country: US (occurrence: US)
  Receive Date: 20221208
  Receipt Date: 20221208
  Transmission Date: 20230112
  Serious: Yes (Other)
  Sender: FDA-Public Use
  Company Number: US-TEVA-2022-US-2833362

PATIENT
  Age: 83 Year
  Sex: Female

DRUGS (1)
  1. CLONIDINE [Suspect]
     Active Substance: CLONIDINE
     Indication: Product used for unknown indication
     Dosage: STRENGTH: 0.2 MG / DAY
     Route: 062
     Dates: start: 202210

REACTIONS (7)
  - Hypertension [Unknown]
  - Dry mouth [Unknown]
  - Ocular hyperaemia [Unknown]
  - Dry eye [Unknown]
  - Erythema [Unknown]
  - Drug dose omission by device [Unknown]
  - Product adhesion issue [Unknown]

NARRATIVE: CASE EVENT DATE: 20220101
